FAERS Safety Report 10283195 (Version 3)
Quarter: 2014Q3

REPORT INFORMATION
  Report Type: Spontaneous
  Country: JP (occurrence: JP)
  Receive Date: 20140708
  Receipt Date: 20140806
  Transmission Date: 20150326
  Serious: Yes (Hospitalization, Other)
  Sender: FDA-Public Use
  Company Number: PHHY2014JP068788

PATIENT
  Age: 42 Year
  Sex: Male

DRUGS (1)
  1. AFINITOR [Suspect]
     Active Substance: EVEROLIMUS
     Indication: RENAL CANCER RECURRENT
     Dosage: 5 MG, DAILY
     Route: 048
     Dates: start: 20140522

REACTIONS (4)
  - Hepatic function abnormal [Not Recovered/Not Resolved]
  - Cough [Not Recovered/Not Resolved]
  - Atelectasis [Unknown]
  - Stomatitis [Recovering/Resolving]

NARRATIVE: CASE EVENT DATE: 20140524
